FAERS Safety Report 15564870 (Version 7)
Quarter: 2019Q4

REPORT INFORMATION
  Report Type: Spontaneous
  Country: US (occurrence: US)
  Receive Date: 20181030
  Receipt Date: 20191213
  Transmission Date: 20200122
  Serious: Yes (Hospitalization, Other)
  Sender: FDA-Public Use
  Company Number: US-PFIZER INC-2016389916

PATIENT
  Age: 57 Year
  Sex: Male
  Weight: 113 kg

DRUGS (7)
  1. VIAGRA [Suspect]
     Active Substance: SILDENAFIL CITRATE
     Dosage: 100 MG, AS NEEDED
     Route: 048
  2. METOPROLOL. [Concomitant]
     Active Substance: METOPROLOL
     Indication: HYPERTENSION
     Dosage: UNK
  3. LISINOPRIL. [Concomitant]
     Active Substance: LISINOPRIL
     Indication: HYPERTENSION
     Dosage: 40 MG, 1X/DAY
  4. VIAGRA [Suspect]
     Active Substance: SILDENAFIL CITRATE
     Indication: ERECTILE DYSFUNCTION
     Dosage: 100 MG, ONCE A DAY
     Route: 048
     Dates: start: 2010
  5. GLIPIZIDE. [Concomitant]
     Active Substance: GLIPIZIDE
     Indication: DIABETES MELLITUS
     Dosage: 10 MG, 2X/DAY
     Route: 048
  6. VIAGRA [Suspect]
     Active Substance: SILDENAFIL CITRATE
     Indication: NECK SURGERY
     Dosage: UNK, TWICE A DAY
  7. FUROSEMIDE. [Concomitant]
     Active Substance: FUROSEMIDE
     Dosage: 40 MG, UNK

REACTIONS (6)
  - Mobility decreased [Unknown]
  - Intentional product use issue [Unknown]
  - Osteoarthritis [Unknown]
  - Drug ineffective [Unknown]
  - Renal cancer [Unknown]
  - Pain [Unknown]

NARRATIVE: CASE EVENT DATE: 20190131
